FAERS Safety Report 23387499 (Version 2)
Quarter: 2024Q1

REPORT INFORMATION
  Report Type: Spontaneous
  Country: GR (occurrence: GR)
  Receive Date: 20240110
  Receipt Date: 20240115
  Transmission Date: 20240410
  Serious: Yes (Other)
  Sender: FDA-Public Use
  Company Number: GR-SANOFI-01889287

PATIENT
  Sex: Male

DRUGS (2)
  1. PLAVIX [Suspect]
     Active Substance: CLOPIDOGREL BISULFATE
     Dosage: UNK
  2. ASPIRIN [Suspect]
     Active Substance: ASPIRIN
     Dosage: UNK

REACTIONS (7)
  - Arrhythmia [Unknown]
  - Intracardiac thrombus [Unknown]
  - Embolism [Unknown]
  - Coronary artery stenosis [Recovered/Resolved]
  - Mesenteric artery embolism [Unknown]
  - Sepsis [Unknown]
  - Ileostomy [Recovered/Resolved]

NARRATIVE: CASE EVENT DATE: 20230328
